FAERS Safety Report 12814970 (Version 1)
Quarter: 2016Q4

REPORT INFORMATION
  Report Type: Report from Study
  Country: US (occurrence: US)
  Receive Date: 20161006
  Receipt Date: 20161006
  Transmission Date: 20170207
  Serious: No
  Sender: FDA-Public Use
  Company Number: US-AMGEN-USASL2016132952

PATIENT
  Age: 56 Year
  Sex: Male

DRUGS (1)
  1. ENBREL [Suspect]
     Active Substance: ETANERCEPT
     Indication: RHEUMATOID ARTHRITIS
     Dosage: UNK
     Route: 065
     Dates: end: 2016

REACTIONS (6)
  - Blood creatinine decreased [Unknown]
  - Laboratory test abnormal [Unknown]
  - Malaise [Unknown]
  - Blood urea decreased [Unknown]
  - Fatigue [Unknown]
  - Blood urine present [Unknown]

NARRATIVE: CASE EVENT DATE: 2016
